FAERS Safety Report 24808354 (Version 1)
Quarter: 2025Q1

REPORT INFORMATION
  Report Type: Spontaneous
  Country: US (occurrence: US)
  Receive Date: 20250106
  Receipt Date: 20250106
  Transmission Date: 20250409
  Serious: Yes (Other)
  Sender: NOVITIUM PHARMA
  Company Number: US-NOVITIUMPHARMA-2024USNVP03024

PATIENT
  Age: 32 Year
  Sex: Female

DRUGS (2)
  1. MEGESTROL ACETATE [Suspect]
     Active Substance: MEGESTROL ACETATE
     Indication: Product used for unknown indication
  2. IBUPROFEN [Concomitant]
     Active Substance: IBUPROFEN

REACTIONS (2)
  - Nephrocalcinosis [Unknown]
  - Calcinosis [Unknown]
